FAERS Safety Report 12981538 (Version 1)
Quarter: 2016Q4

REPORT INFORMATION
  Report Type: Spontaneous
  Country: US (occurrence: US)
  Receive Date: 20161129
  Receipt Date: 20161129
  Transmission Date: 20170207
  Serious: Yes (Other)
  Sender: FDA-Public Use
  Company Number: US-CLINIGEN GROUP PLC/ CLINIGEN HEALTHCARE LTD-E2B_00002363

PATIENT
  Age: 46 Year
  Sex: Male
  Weight: 60 kg

DRUGS (16)
  1. ETHYOL [Suspect]
     Active Substance: AMIFOSTINE
     Dosage: 200-250MG/M2* 2 MONTH(S)
     Route: 042
     Dates: start: 20000612, end: 20000808
  2. ETHYOL [Suspect]
     Active Substance: AMIFOSTINE
     Dosage: 200MG/M2  UNKNOWN
     Route: 042
     Dates: start: 20000612
  3. ETHYOL [Suspect]
     Active Substance: AMIFOSTINE
     Dosage: 200-250MG/M2* 2 MONTH(S)
     Route: 042
     Dates: start: 20000612, end: 20000808
  4. ETHYOL [Suspect]
     Active Substance: AMIFOSTINE
     Dosage: 200MG/M2  UNKNOWN
     Route: 042
     Dates: start: 20000612
  5. CARBOPLATIN. [Suspect]
     Active Substance: CARBOPLATIN
     Indication: TONGUE NEOPLASM MALIGNANT STAGE UNSPECIFIED
     Dosage: WEEKLY 2 MONTH(S)
     Route: 065
     Dates: start: 20000612, end: 20000808
  6. ATIVAN [Concomitant]
     Active Substance: LORAZEPAM
     Route: 065
  7. ETHYOL [Suspect]
     Active Substance: AMIFOSTINE
     Dosage: 200MG/M2  UNKNOWN
     Route: 042
     Dates: start: 20000612
  8. COMPAZINE [Concomitant]
     Active Substance: PROCHLORPERAZINE MALEATE
     Route: 065
  9. ETHYOL [Suspect]
     Active Substance: AMIFOSTINE
     Dosage: 250MG/M2 TIW  UNKNOWN
     Route: 042
     Dates: end: 20000808
  10. TAXOL [Suspect]
     Active Substance: PACLITAXEL
     Indication: TONGUE NEOPLASM MALIGNANT STAGE UNSPECIFIED
     Dosage: WEEKLY 2 MONTH(S)
     Route: 065
     Dates: start: 20000612, end: 20000808
  11. ZOFRAN (ONDANSETRON) [Concomitant]
     Route: 065
  12. ETHYOL [Suspect]
     Active Substance: AMIFOSTINE
     Indication: TONGUE NEOPLASM MALIGNANT STAGE UNSPECIFIED
     Dosage: 200-250MG/M2* 2 MONTH(S)
     Route: 042
     Dates: start: 20000612, end: 20000808
  13. ETHYOL [Suspect]
     Active Substance: AMIFOSTINE
     Dosage: 250MG/M2 TIW  UNKNOWN
     Route: 042
     Dates: end: 20000808
  14. DECADRON [Concomitant]
     Active Substance: DEXAMETHASONE
     Route: 065
  15. ETHYOL [Suspect]
     Active Substance: AMIFOSTINE
     Dosage: 250MG/M2 TIW  UNKNOWN
     Route: 042
     Dates: end: 20000808
  16. RADIATION THERAPY [Suspect]
     Active Substance: RADIATION THERAPY
     Indication: TONGUE NEOPLASM MALIGNANT STAGE UNSPECIFIED
     Dosage: DAILY 2 MONTH(S)
     Route: 050
     Dates: start: 20000612, end: 20000808

REACTIONS (3)
  - Mucosal inflammation [Recovered/Resolved]
  - Rash [Unknown]
  - Cachexia [Unknown]

NARRATIVE: CASE EVENT DATE: 20000626
